FAERS Safety Report 5735150-0 (Version None)
Quarter: 2008Q2

REPORT INFORMATION
  Report Type: 
  Country: None (occurrence: None)
  Receive Date: 20080512
  Receipt Date: 20080429
  Transmission Date: 20081010
  Serious: Yes (Death, Hospitalization, Other)
  Sender: FDA-Public Use
  Company Number: FR-ROCHE-561791

PATIENT
  Age: 48 Year
  Sex: Female

DRUGS (3)
  1. RIBAVIRIN [Suspect]
     Route: 065
     Dates: start: 20050101, end: 20050501
  2. PEG-INTERFERON ALFA 2B [Suspect]
     Dosage: 1.5 MCG/KG WEEKLY
     Route: 065
     Dates: start: 20050101, end: 20050501
  3. PAROXETINE HCL [Concomitant]
     Route: 065
     Dates: start: 20050301

REACTIONS (7)
  - AFFECTIVE DISORDER [None]
  - AUTOIMMUNE HEPATITIS [None]
  - CHOLANGITIS [None]
  - HEPATIC ENCEPHALOPATHY [None]
  - MULTI-ORGAN FAILURE [None]
  - PLATELET DISORDER [None]
  - SEPSIS [None]
